FAERS Safety Report 17427883 (Version 4)
Quarter: 2020Q3

REPORT INFORMATION
  Report Type: Spontaneous
  Country: PT (occurrence: PT)
  Receive Date: 20200218
  Receipt Date: 20200709
  Transmission Date: 20201102
  Serious: Yes (Other)
  Sender: FDA-Public Use
  Company Number: NVSC2020PT041409

PATIENT
  Age: 46 Year
  Sex: Female

DRUGS (2)
  1. PREDNISOLONE. [Suspect]
     Active Substance: PREDNISOLONE
     Indication: URTICARIA
     Dosage: UNK
     Route: 065
  2. MONTELUKAST SODIUM. [Suspect]
     Active Substance: MONTELUKAST SODIUM
     Indication: URTICARIA
     Dosage: UNK
     Route: 048

REACTIONS (3)
  - Posterior reversible encephalopathy syndrome [Unknown]
  - Hypertensive crisis [Recovered/Resolved]
  - Product use in unapproved indication [Unknown]
